FAERS Safety Report 11085536 (Version 2)
Quarter: 2015Q2

REPORT INFORMATION
  Report Type: Spontaneous
  Country: US (occurrence: US)
  Receive Date: 20150503
  Receipt Date: 20150525
  Transmission Date: 20150821
  Serious: No
  Sender: FDA-Public Use
  Company Number: US-JNJFOC-20140517503

PATIENT
  Sex: Female
  Weight: 81.65 kg

DRUGS (2)
  1. IRON PLUS VITAMINS [Concomitant]
     Indication: ANAEMIA
     Route: 048
  2. ORTHO EVRA [Suspect]
     Active Substance: ETHINYL ESTRADIOL\NORELGESTROMIN
     Indication: CONTRACEPTION
     Dosage: SEP-2011 OR OCT-2011
     Route: 062
     Dates: start: 2011

REACTIONS (2)
  - Product adhesion issue [Unknown]
  - Wrong technique in drug usage process [Not Recovered/Not Resolved]
